FAERS Safety Report 7970704-2 (Version None)
Quarter: 2011Q4

REPORT INFORMATION
  Report Type: 
  Country: None (occurrence: None)
  Receive Date: 20111122
  Receipt Date: 20110719
  Transmission Date: 20120403
  Serious: No
  Sender: FDA-Public Use
  Company Number: PHHY2011US53597

PATIENT
  Age: 35 Year
  Sex: Female

DRUGS (6)
  1. PROMETHAZINE [Concomitant]
  2. GILENYA [Suspect]
     Indication: RELAPSING-REMITTING MULTIPLE SCLEROSIS
     Dosage: 0.5 MG, QD, ORAL
     Route: 048
     Dates: start: 20110610
  3. PROPRANOLOL [Concomitant]
  4. DETROL [Concomitant]
  5. ZOLPIDEM [Concomitant]
  6. SUMATRIPTAN SUCCINATE (IMITREX) [Concomitant]

REACTIONS (1)
  - PRURITUS [None]
